FAERS Safety Report 20751575 (Version 1)
Quarter: 2022Q2

REPORT INFORMATION
  Report Type: Other
  Country: US (occurrence: None)
  Receive Date: 20220426
  Receipt Date: 20220426
  Transmission Date: 20220721
  Serious: Yes (Other)
  Sender: FDA-Public Use
  Company Number: US-ROCHE-3081452

PATIENT
  Sex: Female

DRUGS (12)
  1. XOLAIR [Suspect]
     Active Substance: OMALIZUMAB
     Indication: Urticaria
     Route: 058
  2. BENZONATATE [Concomitant]
     Active Substance: BENZONATATE
  3. IPRATROPIUM [Concomitant]
     Active Substance: IPRATROPIUM
  4. IPRATROPIUM [Concomitant]
     Active Substance: IPRATROPIUM
  5. GABAPENTIN [Concomitant]
     Active Substance: GABAPENTIN
  6. PANTOPRAZOLE [Concomitant]
     Active Substance: PANTOPRAZOLE
  7. DULOXETINE [Concomitant]
     Active Substance: DULOXETINE
  8. LEVOTHYROXINE [Concomitant]
     Active Substance: LEVOTHYROXINE
  9. BETAMETHASONE [Concomitant]
     Active Substance: BETAMETHASONE
  10. FAMOTIDINE [Concomitant]
     Active Substance: FAMOTIDINE
  11. LEVOCETIRIZINE [Concomitant]
     Active Substance: LEVOCETIRIZINE
  12. DICLOFENAC [Concomitant]
     Active Substance: DICLOFENAC

REACTIONS (6)
  - Type 2 diabetes mellitus [Unknown]
  - Dyslipidaemia [Unknown]
  - Hypothyroidism [Unknown]
  - Obesity [Unknown]
  - Fibromyalgia [Unknown]
  - Microalbuminuria [Unknown]
